FAERS Safety Report 19348480 (Version 1)
Quarter: 2021Q2

REPORT INFORMATION
  Report Type: Spontaneous
  Country: US (occurrence: US)
  Receive Date: 20210528
  Receipt Date: 20210528
  Transmission Date: 20210717
  Serious: No
  Sender: FDA-Public Use
  Company Number: None

PATIENT
  Sex: Female

DRUGS (1)
  1. GUANFACINE HCL ER 2 MG TABLET SUBSTITUTED FOR INTUNIV ER [Suspect]
     Active Substance: GUANFACINE HYDROCHLORIDE
     Indication: ATTENTION DEFICIT HYPERACTIVITY DISORDER
     Dosage: ?          QUANTITY:1 TABLET(S);OTHER FREQUENCY:EVERY EVENING;?
     Route: 048
     Dates: start: 20210519, end: 20210528

REACTIONS (2)
  - Product quality issue [None]
  - Drug ineffective [None]
